FAERS Safety Report 7376458-5 (Version None)
Quarter: 2011Q1

REPORT INFORMATION
  Report Type: 
  Country: None (occurrence: None)
  Receive Date: 20110325
  Receipt Date: 20110318
  Transmission Date: 20110831
  Serious: Yes (Hospitalization)
  Sender: FDA-Public Use
  Company Number: US-B.I. PHARMACEUTICALS,INC./RIDGEFIELD-2011-BP-05270BP

PATIENT
  Sex: Male
  Weight: 73.5 kg

DRUGS (16)
  1. SYNTHROID [Concomitant]
     Dosage: 0.1 MG
     Route: 048
  2. OMEPRAZOLE [Concomitant]
     Dosage: 20 MG
     Route: 048
  3. NITROSTAT [Concomitant]
     Route: 048
  4. BETIMOL [Concomitant]
  5. CIALIS [Concomitant]
     Indication: ANXIETY
     Route: 048
  6. SIMVASTATIN [Concomitant]
     Route: 048
  7. ALTACE [Concomitant]
     Route: 048
  8. METRONIDAZOLE [Concomitant]
     Indication: ANXIETY
     Route: 048
  9. PRADAXA [Suspect]
     Indication: DEEP VEIN THROMBOSIS
     Dosage: 300 MG
     Route: 048
     Dates: start: 20101209, end: 20110212
  10. COREG CR [Concomitant]
     Dosage: 80 MG
     Route: 048
  11. ALLOPURINOL [Concomitant]
     Dosage: 100 MG
     Route: 048
  12. ATIVAN [Concomitant]
     Indication: ANXIETY
     Route: 048
  13. ACETAMINOPHEN AND HYDROCODONE BITARTRATE [Concomitant]
     Indication: ANXIETY
     Route: 048
  14. PRADAXA [Suspect]
     Indication: PULMONARY EMBOLISM
  15. ZOLPIDEM TARTRATE [Concomitant]
     Route: 048
  16. LOTREL [Concomitant]
     Route: 048

REACTIONS (5)
  - GASTROINTESTINAL HAEMORRHAGE [None]
  - DIVERTICULUM [None]
  - RECTAL HAEMORRHAGE [None]
  - DIVERTICULITIS [None]
  - HAEMORRHOIDS [None]
